FAERS Safety Report 21588586 (Version 2)
Quarter: 2023Q1

REPORT INFORMATION
  Report Type: Spontaneous
  Country: TW (occurrence: None)
  Receive Date: 20221114
  Receipt Date: 20230125
  Transmission Date: 20230418
  Serious: Yes (Death, Other)
  Sender: FDA-Public Use
  Company Number: TW-ROCHE-3216059

PATIENT
  Sex: Female

DRUGS (13)
  1. RITUXIMAB [Suspect]
     Active Substance: RITUXIMAB
     Indication: Diffuse large B-cell lymphoma
     Dosage: R-CHOP
     Route: 065
     Dates: start: 20220622, end: 20220824
  2. RITUXIMAB [Suspect]
     Active Substance: RITUXIMAB
     Dosage: RB
     Route: 065
     Dates: start: 20220918, end: 20220919
  3. RITUXIMAB [Suspect]
     Active Substance: RITUXIMAB
     Dosage: R-ESHAP
     Route: 065
     Dates: start: 20220927, end: 20221001
  4. CYCLOPHOSPHAMIDE\DOXORUBICIN\PREDNISONE\RITUXIMAB\VINCRISTINE [Suspect]
     Active Substance: CYCLOPHOSPHAMIDE\DOXORUBICIN\PREDNISONE\RITUXIMAB\VINCRISTINE
     Indication: Diffuse large B-cell lymphoma
     Route: 065
     Dates: start: 20220622, end: 20220824
  5. BENDAMUSTINE [Suspect]
     Active Substance: BENDAMUSTINE
     Indication: Diffuse large B-cell lymphoma
     Dosage: RB
     Route: 065
     Dates: start: 20220918, end: 20220919
  6. ETOPOSIDE [Suspect]
     Active Substance: ETOPOSIDE
     Indication: Diffuse large B-cell lymphoma
     Dosage: R-ESHAP
     Route: 065
     Dates: start: 20220927, end: 20221001
  7. CYTARABINE [Suspect]
     Active Substance: CYTARABINE
     Indication: Diffuse large B-cell lymphoma
     Dosage: R-ESHAP
     Route: 065
     Dates: start: 20220927, end: 20221001
  8. CISPLATIN [Suspect]
     Active Substance: CISPLATIN
     Indication: Diffuse large B-cell lymphoma
     Dosage: R-ESHAP
     Route: 065
     Dates: start: 20220927, end: 20221001
  9. METHYLPREDNISOLONE [Suspect]
     Active Substance: METHYLPREDNISOLONE
     Indication: Diffuse large B-cell lymphoma
     Dosage: R-ESHAP
     Route: 065
     Dates: start: 20220927, end: 20221001
  10. CYCLOPHOSPHAMIDE [Concomitant]
     Active Substance: CYCLOPHOSPHAMIDE
     Indication: Diffuse large B-cell lymphoma
     Dosage: R-CHOP
     Dates: start: 20220622, end: 20220824
  11. DOXORUBICIN [Concomitant]
     Active Substance: DOXORUBICIN
     Indication: Diffuse large B-cell lymphoma
     Dosage: R-CHOP
     Dates: start: 20220622, end: 20220824
  12. VINCRISTINE [Concomitant]
     Active Substance: VINCRISTINE
     Indication: Diffuse large B-cell lymphoma
     Dosage: R-CHOP
     Dates: start: 20220622, end: 20220824
  13. PREDNISONE [Concomitant]
     Active Substance: PREDNISONE
     Indication: Diffuse large B-cell lymphoma
     Dosage: R-CHOP
     Dates: start: 20220622, end: 20220824

REACTIONS (5)
  - Disease progression [Fatal]
  - Metastatic lymphoma [Unknown]
  - Bacterial infection [Recovered/Resolved]
  - Therapy non-responder [Unknown]
  - Off label use [Unknown]
